FAERS Safety Report 6575699-4 (Version None)
Quarter: 2010Q1

REPORT INFORMATION
  Report Type: 
  Country: None (occurrence: None)
  Receive Date: 20100208
  Receipt Date: 20100208
  Transmission Date: 20100710
  Serious: Yes (Other)
  Sender: FDA-Public Use
  Company Number: None

PATIENT
  Age: 44 Year
  Sex: Female
  Weight: 95.2554 kg

DRUGS (1)
  1. ZETIA [Suspect]
     Indication: BLOOD CHOLESTEROL
     Dosage: 1 PILL 1 X PER DAY PO
     Route: 048
     Dates: start: 20100104, end: 20100207

REACTIONS (13)
  - DIARRHOEA [None]
  - DYSPNOEA [None]
  - FATIGUE [None]
  - FLATULENCE [None]
  - GASTROINTESTINAL PAIN [None]
  - HYPOAESTHESIA [None]
  - MALAISE [None]
  - MUSCLE SPASMS [None]
  - MYALGIA [None]
  - PAIN [None]
  - PAIN IN EXTREMITY [None]
  - PARAESTHESIA [None]
  - QUALITY OF LIFE DECREASED [None]
